FAERS Safety Report 6810147-8 (Version None)
Quarter: 2010Q2

REPORT INFORMATION
  Report Type: 
  Country: None (occurrence: None)
  Receive Date: 20100630
  Receipt Date: 20100624
  Transmission Date: 20101027
  Serious: Yes (Hospitalization)
  Sender: FDA-Public Use
  Company Number: DE-ABBOTT-10P-062-0653418-00

PATIENT
  Age: 67 Year
  Sex: Female

DRUGS (12)
  1. ERGENYL CHRONO [Suspect]
     Indication: BIPOLAR DISORDER
     Route: 048
     Dates: start: 20090602, end: 20090602
  2. ERGENYL CHRONO [Suspect]
     Route: 048
     Dates: start: 20090603, end: 20090609
  3. ERGENYL CHRONO [Suspect]
     Route: 048
     Dates: start: 20090610, end: 20090610
  4. ERGENYL CHRONO [Suspect]
     Route: 048
     Dates: start: 20090611
  5. ZYPREXA [Suspect]
     Indication: BIPOLAR DISORDER
     Route: 048
     Dates: start: 20090530, end: 20090727
  6. ZYPREXA [Suspect]
     Route: 048
     Dates: start: 20090728, end: 20090917
  7. ZYPREXA [Suspect]
     Route: 048
     Dates: start: 20090919, end: 20091026
  8. ZYPREXA [Suspect]
     Route: 048
     Dates: start: 20091027, end: 20100111
  9. ZYPREXA [Suspect]
     Route: 048
     Dates: start: 20100112, end: 20100201
  10. DIOVAN HCT [Concomitant]
     Indication: DRUG USE FOR UNKNOWN INDICATION
  11. ALLOPURINOL [Concomitant]
     Indication: DRUG USE FOR UNKNOWN INDICATION
     Dates: start: 20080101
  12. LITHIUM [Concomitant]
     Indication: DRUG USE FOR UNKNOWN INDICATION
     Dates: end: 20090601

REACTIONS (5)
  - ASTHENIA [None]
  - GAIT DISTURBANCE [None]
  - PAIN IN EXTREMITY [None]
  - PARAESTHESIA [None]
  - TREMOR [None]
